FAERS Safety Report 9216684 (Version 1)
Quarter: 2013Q2

REPORT INFORMATION
  Report Type: Spontaneous
  Country: US (occurrence: US)
  Receive Date: 20130408
  Receipt Date: 20130408
  Transmission Date: 20140414
  Serious: No
  Sender: FDA-Public Use
  Company Number: US-PFIZER INC-2013109245

PATIENT
  Age: 70 Year
  Sex: Female
  Weight: 63.49 kg

DRUGS (1)
  1. XANAX [Suspect]
     Indication: TREMOR
     Dosage: 0.5 MG, UNK

REACTIONS (2)
  - Off label use [Unknown]
  - Therapeutic response unexpected [Unknown]
